FAERS Safety Report 6357265-9 (Version None)
Quarter: 2009Q3

REPORT INFORMATION
  Report Type: 
  Country: None (occurrence: None)
  Receive Date: 20090916
  Receipt Date: 20090903
  Transmission Date: 20100115
  Serious: Yes (Other)
  Sender: FDA-Public Use
  Company Number: PHHY2009GB38116

PATIENT
  Sex: Female

DRUGS (3)
  1. CLOZARIL [Suspect]
     Indication: SCHIZOPHRENIA
     Dosage: 50MG MANE, 300MG NOCTE
     Dates: start: 20090428
  2. CITALOPRAM HYDROBROMIDE [Concomitant]
     Dosage: UNK
  3. CITALOPRAM HYDROBROMIDE [Concomitant]
     Dosage: 60 MG, UNK

REACTIONS (3)
  - DIZZINESS [None]
  - DRUG LEVEL INCREASED [None]
  - PETIT MAL EPILEPSY [None]
